FAERS Safety Report 11659797 (Version 1)
Quarter: 2015Q4

REPORT INFORMATION
  Report Type: Spontaneous
  Country: US (occurrence: None)
  Receive Date: 20151023
  Receipt Date: 20151023
  Transmission Date: 20160304
  Serious: Yes (Life-Threatening, Hospitalization)
  Sender: FDA-Public Use
  Company Number: None

PATIENT
  Age: 34 Year
  Sex: Female
  Weight: 47.17 kg

DRUGS (2)
  1. ZOFRAN [Suspect]
     Active Substance: ONDANSETRON HYDROCHLORIDE
     Route: 042
  2. IOHEXOL [Suspect]
     Active Substance: IOHEXOL
     Dosage: 300 MG/ML  1 150ML  -- INTRAVENOUS

REACTIONS (25)
  - Pain in extremity [None]
  - Psychotic disorder [None]
  - Abdominal pain upper [None]
  - Panic attack [None]
  - Breast pain [None]
  - Dizziness [None]
  - Nausea [None]
  - Breath odour [None]
  - Suicidal ideation [None]
  - Tremor [None]
  - Headache [None]
  - Heart rate increased [None]
  - Eructation [None]
  - Back pain [None]
  - Arthralgia [None]
  - Vaginal discharge [None]
  - Hypopnoea [None]
  - Eye pain [None]
  - Pruritus generalised [None]
  - Insomnia [None]
  - Cough [None]
  - Musculoskeletal pain [None]
  - Vision blurred [None]
  - Tongue discolouration [None]
  - Hallucination [None]

NARRATIVE: CASE EVENT DATE: 20150307
